FAERS Safety Report 23955491 (Version 1)
Quarter: 2024Q2

REPORT INFORMATION
  Report Type: Spontaneous
  Country: CN (occurrence: None)
  Receive Date: 20240610
  Receipt Date: 20240610
  Transmission Date: 20240716
  Serious: Yes (Other)
  Sender: FDA-Public Use
  Company Number: CN-ROCHE-3576161

PATIENT
  Age: 34 Year
  Sex: Female

DRUGS (20)
  1. AVASTIN [Suspect]
     Active Substance: BEVACIZUMAB
     Indication: Rectal cancer
     Dosage: BEVACIZUMAB + FOLFOX REGIMEN
     Route: 065
     Dates: start: 20210812, end: 20211209
  2. AVASTIN [Suspect]
     Active Substance: BEVACIZUMAB
     Dosage: TISLELIZUMAB INJECTION + BEVACIZUMAB + FOLFIRI ON 8 JUL 2022 AND 22 JUL 2022
     Route: 065
     Dates: start: 20220708
  3. AVASTIN [Suspect]
     Active Substance: BEVACIZUMAB
     Dosage: TISLELIZUMAB INJECTION + BEVACIZUMAB + IRINOTECAN HYDROCHLORIDE + RALTITREXED
     Route: 065
     Dates: start: 20220809, end: 20230225
  4. AVASTIN [Suspect]
     Active Substance: BEVACIZUMAB
     Dosage: BEVACIZUMAB+TAS-102
     Route: 065
     Dates: start: 20230322
  5. LEUCOVORIN CALCIUM [Concomitant]
     Active Substance: LEUCOVORIN CALCIUM
     Indication: Rectal cancer
     Dosage: FOLFOX6
     Dates: start: 20210728
  6. LEUCOVORIN CALCIUM [Concomitant]
     Active Substance: LEUCOVORIN CALCIUM
     Dosage: BEVACIZUMAB + FOLFOX REGIMEN
     Dates: start: 20210812, end: 20211209
  7. LEUCOVORIN CALCIUM [Concomitant]
     Active Substance: LEUCOVORIN CALCIUM
     Dosage: TISLELIZUMAB INJECTION + BEVACIZUMAB + FOLFIRI ON 8 JUL 2022 AND 22 JUL 2022
     Dates: start: 20220708
  8. FLUOROURACIL [Concomitant]
     Active Substance: FLUOROURACIL
     Indication: Rectal cancer
     Dosage: FOLFOX6
     Dates: start: 20210728
  9. FLUOROURACIL [Concomitant]
     Active Substance: FLUOROURACIL
     Dosage: BEVACIZUMAB + FOLFOX REGIMEN
     Dates: start: 20210812, end: 20211209
  10. FLUOROURACIL [Concomitant]
     Active Substance: FLUOROURACIL
     Dosage: TISLELIZUMAB INJECTION + BEVACIZUMAB + FOLFIRI ON 8 JUL 2022 AND 22 JUL 2022
     Dates: start: 20220708
  11. OXALIPLATIN [Concomitant]
     Active Substance: OXALIPLATIN
     Indication: Rectal cancer
     Dosage: BEVACIZUMAB + FOLFOX REGIMEN
     Dates: start: 20210812, end: 20211209
  12. FRUQUINTINIB [Concomitant]
     Active Substance: FRUQUINTINIB
     Indication: Rectal cancer
     Dosage: FRUQUINTINIB + CAPECITABINE
     Dates: start: 202112, end: 202202
  13. CAPECITABINE [Concomitant]
     Active Substance: CAPECITABINE
     Indication: Rectal cancer
     Dosage: FRUQUINTINIB + CAPECITABINE
     Dates: start: 202112, end: 202202
  14. CAPECITABINE [Concomitant]
     Active Substance: CAPECITABINE
     Dates: start: 20220304
  15. TISLELIZUMAB [Concomitant]
     Active Substance: TISLELIZUMAB
     Indication: Rectal cancer
     Dosage: TISLELIZUMAB INJECTION + BEVACIZUMAB + FOLFIRI ON 8 JUL 2022 AND 22 JUL 2022
     Dates: start: 20220708
  16. TISLELIZUMAB [Concomitant]
     Active Substance: TISLELIZUMAB
     Dosage: TISLELIZUMAB INJECTION + BEVACIZUMAB + IRINOTECAN HYDROCHLORIDE + RALTITREXED
     Dates: start: 20220809, end: 20230225
  17. IRINOTECAN HYDROCHLORIDE [Concomitant]
     Active Substance: IRINOTECAN HYDROCHLORIDE
     Indication: Rectal cancer
     Dosage: TISLELIZUMAB INJECTION + BEVACIZUMAB + FOLFIRI ON 8 JUL 2022 AND 22 JUL 2022
     Dates: start: 20220708
  18. IRINOTECAN HYDROCHLORIDE [Concomitant]
     Active Substance: IRINOTECAN HYDROCHLORIDE
     Dosage: TISLELIZUMAB INJECTION + BEVACIZUMAB + IRINOTECAN HYDROCHLORIDE + RALTITREXED
     Dates: start: 20220809, end: 20230225
  19. RALTITREXED [Concomitant]
     Active Substance: RALTITREXED
     Indication: Rectal cancer
     Dosage: TISLELIZUMAB INJECTION + BEVACIZUMAB + IRINOTECAN HYDROCHLORIDE + RALTITREXED
     Dates: start: 20220809, end: 20230225
  20. TIPIRACIL HYDROCHLORIDE\TRIFLURIDINE [Concomitant]
     Active Substance: TIPIRACIL HYDROCHLORIDE\TRIFLURIDINE
     Indication: Rectal cancer
     Dosage: TAS-102 +BEVACIZUMAB
     Dates: start: 20230322

REACTIONS (8)
  - Platelet count decreased [Unknown]
  - Hypoproteinaemia [Unknown]
  - Ascites [Unknown]
  - Disease progression [Unknown]
  - Palmar-plantar erythrodysaesthesia syndrome [Unknown]
  - Bradycardia [Unknown]
  - White blood cell count decreased [Unknown]
  - Anaemia [Unknown]

NARRATIVE: CASE EVENT DATE: 20220801
